FAERS Safety Report 18975744 (Version 1)
Quarter: 2021Q1

REPORT INFORMATION
  Report Type: Spontaneous
  Country: US (occurrence: US)
  Receive Date: 20210306
  Receipt Date: 20210306
  Transmission Date: 20210420
  Serious: Yes (Other)
  Sender: FDA-Public Use
  Company Number: US-ASTRAZENECA-2021A098854

PATIENT
  Sex: Female
  Weight: 56.2 kg

DRUGS (2)
  1. SYMBICORT [Suspect]
     Active Substance: BUDESONIDE\FORMOTEROL FUMARATE DIHYDRATE
     Indication: ASTHMA
     Dosage: 80/4.5MCG 2 PUFFS TWICE A DAY
     Route: 055
  2. XANAX [Concomitant]
     Active Substance: ALPRAZOLAM
     Dosage: 0.25MG UNKNOWN
     Route: 065

REACTIONS (12)
  - Speech disorder [Unknown]
  - Limb deformity [Unknown]
  - Product dose omission in error [Unknown]
  - Condition aggravated [Unknown]
  - Dysphonia [Unknown]
  - Intentional device misuse [Not Recovered/Not Resolved]
  - Anxiety [Unknown]
  - Cerebrovascular accident [Unknown]
  - Aphonia [Unknown]
  - Intentional product misuse [Unknown]
  - Cerebral disorder [Unknown]
  - Device malfunction [Unknown]
